FAERS Safety Report 19083246 (Version 1)
Quarter: 2021Q2

REPORT INFORMATION
  Report Type: Spontaneous
  Country: US (occurrence: US)
  Receive Date: 20210401
  Receipt Date: 20210401
  Transmission Date: 20210717
  Serious: No
  Sender: FDA-Public Use
  Company Number: None

PATIENT
  Age: 63 Year
  Sex: Female
  Weight: 49.5 kg

DRUGS (8)
  1. CARBOXMETHYCELLULOSE SOD PF 0.5% SOLN [Concomitant]
  2. LEVOTHYROXINE 25 MCG TABLET [Concomitant]
  3. ARMOUR THYROID 30MG TAB [Concomitant]
  4. ESTRADIOL VAGINAL 0.1MG/GM [Concomitant]
  5. RECLAST [Suspect]
     Active Substance: ZOLEDRONIC ACID
     Indication: OSTEOPOROSIS
     Route: 042
     Dates: start: 20210330, end: 20210330
  6. ERGOCALCIFEROL 50000 UNIT CAPSULE [Concomitant]
  7. GENTEAL TEARS NIGHT TIME OINTMENT [Concomitant]
  8. CALCIUM CITRATE 950 MG ORAL CAPSULE [Concomitant]

REACTIONS (3)
  - Myalgia [None]
  - Heart rate increased [None]
  - Adverse drug reaction [None]

NARRATIVE: CASE EVENT DATE: 20210330
